FAERS Safety Report 4949687-5 (Version None)
Quarter: 2006Q1

REPORT INFORMATION
  Report Type: 
  Country: None (occurrence: None)
  Receive Date: 20060316
  Receipt Date: 20060307
  Transmission Date: 20060701
  Serious: Yes (Other)
  Sender: FDA-Public Use
  Company Number: USA-2006-0023761

PATIENT
  Sex: Male

DRUGS (8)
  1. OXYCONTIN [Suspect]
     Indication: DRUG USE FOR UNKNOWN INDICATION
  2. GLUCOTROL [Concomitant]
  3. GLUCOPHAGE [Concomitant]
  4. ACCUPRIL [Concomitant]
  5. LIPITOR [Concomitant]
  6. DETROL [Concomitant]
  7. ASPIRIN [Concomitant]
  8. INDOCIN [Concomitant]

REACTIONS (1)
  - SUICIDAL IDEATION [None]
